FAERS Safety Report 5814541-3 (Version None)
Quarter: 2008Q3

REPORT INFORMATION
  Report Type: 
  Country: None (occurrence: None)
  Receive Date: 20080718
  Receipt Date: 20080709
  Transmission Date: 20090109
  Serious: Yes (Other)
  Sender: FDA-Public Use
  Company Number: US-NOVOPROD-274624

PATIENT
  Sex: Female
  Weight: 58.05 kg

DRUGS (8)
  1. ACTIVELLA [Suspect]
     Indication: MENOPAUSAL SYMPTOMS
     Dosage: 1 TAB, QD
     Route: 048
     Dates: start: 20020101, end: 20040101
  2. ACTIVELLA [Suspect]
     Dosage: 1 TAB ONE DAY, 0.5 TAB THE NEXT DAY
     Route: 048
     Dates: start: 20050101, end: 20080301
  3. ACTIVELLA [Suspect]
     Dosage: .5 TAB, UNK
     Route: 048
     Dates: start: 20080301
  4. DICLOFENAC [Concomitant]
     Indication: DRUG USE FOR UNKNOWN INDICATION
  5. VITAMIN TAB [Concomitant]
     Indication: DRUG USE FOR UNKNOWN INDICATION
  6. COQ10 [Concomitant]
     Indication: DRUG USE FOR UNKNOWN INDICATION
  7. SELENIUM [Concomitant]
  8. NIACIN [Concomitant]

REACTIONS (1)
  - BENIGN BREAST NEOPLASM [None]
